FAERS Safety Report 7913756-8 (Version None)
Quarter: 2011Q4

REPORT INFORMATION
  Report Type: 
  Country: None (occurrence: None)
  Receive Date: 20111115
  Receipt Date: 20111109
  Transmission Date: 20120403
  Serious: Yes (Death, Hospitalization, Other)
  Sender: FDA-Public Use
  Company Number: IT-BRISTOL-MYERS SQUIBB COMPANY-15914716

PATIENT
  Sex: Female

DRUGS (3)
  1. TRUVADA [Suspect]
     Route: 064
  2. NORVIR [Suspect]
     Route: 064
  3. REYATAZ [Suspect]
     Route: 064

REACTIONS (2)
  - INTRA-UTERINE DEATH [None]
  - HYDROPS FOETALIS [None]
